FAERS Safety Report 8819224 (Version 1)
Quarter: 2012Q4

REPORT INFORMATION
  Report Type: 
  Country: US (occurrence: US)
  Receive Date: 20121001
  Receipt Date: 20121001
  Transmission Date: 20130627
  Serious: No
  Sender: FDA-Public Use
  Company Number: US-PFIZER INC-2012241962

PATIENT
  Age: 42 Year
  Sex: Male
  Weight: 68.03 kg

DRUGS (3)
  1. EFFEXOR XR [Suspect]
     Indication: ANXIETY DISORDER
     Dosage: 75 mg, daily
     Route: 048
  2. EFFEXOR XR [Suspect]
     Indication: MENTAL IMPAIRMENT
  3. EFFEXOR XR [Suspect]
     Indication: MEMORY IMPAIRMENT

REACTIONS (2)
  - Drug ineffective [Not Recovered/Not Resolved]
  - Off label use [Unknown]
